FAERS Safety Report 8041539-X (Version None)
Quarter: 2012Q1

REPORT INFORMATION
  Report Type: 
  Country: None (occurrence: None)
  Receive Date: 20120112
  Receipt Date: 20120109
  Transmission Date: 20120608
  Serious: Yes (Other)
  Sender: FDA-Public Use
  Company Number: US-JNJFOC-2010001605

PATIENT
  Sex: Male
  Weight: 93.44 kg

DRUGS (10)
  1. NEXIUM [Concomitant]
     Indication: HYPERTENSION
     Dosage: DAILY DOSE TEXT: UNSPECIFIED
     Route: 048
  2. ROLAIDS TAB [Suspect]
     Indication: ABDOMINAL DISCOMFORT
     Dosage: THREE TABLETS, ABOUT 12 A DAY
     Route: 048
     Dates: start: 20100115, end: 20100117
  3. ROLAIDS TAB [Suspect]
     Dosage: THREE TABLETS, ABOUT 12 A DAY
     Route: 048
     Dates: start: 20100115, end: 20100117
  4. CLONAZEPAM [Concomitant]
     Indication: PRODUCT USED FOR UNKNOWN INDICATION
     Route: 048
  5. ROLAIDS TAB [Suspect]
     Indication: DYSPEPSIA
     Dosage: THREE TABLETS, ABOUT 12 A DAY
     Route: 048
     Dates: start: 20100115, end: 20100117
  6. ASPIRIN [Concomitant]
     Indication: PRODUCT USED FOR UNKNOWN INDICATION
     Route: 065
  7. TOPAMAX [Concomitant]
     Indication: PRODUCT USED FOR UNKNOWN INDICATION
     Route: 048
  8. CARTIA XT [Concomitant]
     Indication: PRODUCT USED FOR UNKNOWN INDICATION
     Route: 048
  9. SIMVASTATIN [Concomitant]
     Indication: PRODUCT USED FOR UNKNOWN INDICATION
     Route: 048
  10. TRAZODONE HCL [Concomitant]
     Indication: PRODUCT USED FOR UNKNOWN INDICATION
     Route: 048

REACTIONS (2)
  - PRODUCT QUALITY ISSUE [None]
  - GASTROENTERITIS [None]
